FAERS Safety Report 7209948-6 (Version None)
Quarter: 2011Q1

REPORT INFORMATION
  Report Type: 
  Country: None (occurrence: None)
  Receive Date: 20110105
  Receipt Date: 20101222
  Transmission Date: 20110831
  Serious: No
  Sender: FDA-Public Use
  Company Number: US-BIOGENIDEC-2010BI039583

PATIENT
  Sex: Female

DRUGS (1)
  1. TYSABRI [Suspect]
     Indication: MULTIPLE SCLEROSIS
     Route: 042
     Dates: start: 20090424

REACTIONS (15)
  - BLOOD CHOLESTEROL INCREASED [None]
  - DYSPNOEA [None]
  - HYPERTENSION [None]
  - HYPERSOMNIA [None]
  - BACK PAIN [None]
  - LOCAL SWELLING [None]
  - URINARY INCONTINENCE [None]
  - BLADDER DISORDER [None]
  - FUNGAL SKIN INFECTION [None]
  - HEPATIC ENZYME INCREASED [None]
  - HEART RATE DECREASED [None]
  - MUSCLE SPASTICITY [None]
  - FATIGUE [None]
  - NAUSEA [None]
  - PALPITATIONS [None]
